FAERS Safety Report 5390417-3 (Version None)
Quarter: 2007Q3

REPORT INFORMATION
  Report Type: 
  Country: None (occurrence: None)
  Receive Date: 20070718
  Receipt Date: 20070126
  Transmission Date: 20080115
  Serious: No
  Sender: FDA-Public Use
  Company Number: US-KINGPHARMUSA00001-K200700101

PATIENT

DRUGS (2)
  1. LEVOXYL [Suspect]
     Dosage: UNK, UNK
     Dates: start: 20060101, end: 20070101
  2. LEVOXYL [Suspect]
     Dosage: 125MCG ALTERNATING WITH 137 MCG, QOD

REACTIONS (1)
  - BLOOD THYROID STIMULATING HORMONE DECREASED [None]
